FAERS Safety Report 8014586-1 (Version None)
Quarter: 2011Q4

REPORT INFORMATION
  Report Type: 
  Country: None (occurrence: None)
  Receive Date: 20111229
  Receipt Date: 20111220
  Transmission Date: 20120403
  Serious: Yes (Other)
  Sender: FDA-Public Use
  Company Number: US-ASTRAZENECA-2010SE38559

PATIENT
  Age: 56 Year
  Sex: Female

DRUGS (3)
  1. PRILOSEC [Suspect]
     Route: 048
  2. MULTI-VITAMINS [Concomitant]
  3. NEXIUM [Suspect]
     Route: 048

REACTIONS (7)
  - INCORRECT DOSE ADMINISTERED [None]
  - PAIN [None]
  - DRUG INEFFECTIVE [None]
  - ANKLE FRACTURE [None]
  - GASTROOESOPHAGEAL REFLUX DISEASE [None]
  - DRUG DOSE OMISSION [None]
  - MALAISE [None]
